FAERS Safety Report 8289127-4 (Version None)
Quarter: 2012Q2

REPORT INFORMATION
  Report Type: 
  Country: None (occurrence: None)
  Receive Date: 20120417
  Receipt Date: 20120410
  Transmission Date: 20120825
  Serious: Yes (Death, Other)
  Sender: FDA-Public Use
  Company Number: US-JNJFOC-20120405867

PATIENT

DRUGS (30)
  1. DOXORUBICIN HCL [Suspect]
     Indication: HODGKIN'S DISEASE
     Route: 042
  2. DOXORUBICIN HCL [Suspect]
     Route: 042
  3. ETOPOSIDE [Suspect]
     Route: 042
  4. PREDNISONE TAB [Suspect]
     Indication: HODGKIN'S DISEASE
     Route: 048
  5. PREDNISONE TAB [Suspect]
     Route: 048
  6. PROCARBAZINE HYDROCHLORIDE [Suspect]
     Route: 065
  7. BLEOMYCIN SULFATE [Suspect]
     Route: 042
  8. CYCLOPHOSPHAMIDE [Suspect]
     Route: 042
  9. VINCRISTINE [Suspect]
     Route: 042
  10. PREDNISONE TAB [Suspect]
     Route: 048
  11. DOXORUBICIN HCL [Suspect]
     Route: 042
  12. BLEOMYCIN SULFATE [Suspect]
     Indication: HODGKIN'S DISEASE
     Route: 042
  13. BLEOMYCIN SULFATE [Suspect]
     Route: 042
  14. ETOPOSIDE [Suspect]
     Indication: HODGKIN'S DISEASE
     Route: 042
  15. PROCARBAZINE HYDROCHLORIDE [Suspect]
     Route: 065
  16. CYCLOPHOSPHAMIDE [Suspect]
     Route: 042
  17. CYCLOPHOSPHAMIDE [Suspect]
     Route: 042
  18. PROCARBAZINE HYDROCHLORIDE [Suspect]
     Indication: HODGKIN'S DISEASE
     Route: 065
  19. BLEOMYCIN SULFATE [Suspect]
     Route: 042
  20. ETOPOSIDE [Suspect]
     Route: 042
  21. VINCRISTINE [Suspect]
     Indication: HODGKIN'S DISEASE
     Route: 042
  22. ETOPOSIDE [Suspect]
     Route: 042
  23. CYCLOPHOSPHAMIDE [Suspect]
     Indication: HODGKIN'S DISEASE
     Route: 042
  24. VINCRISTINE [Suspect]
     Route: 042
  25. VINCRISTINE [Suspect]
     Route: 042
  26. DOXORUBICIN HCL [Suspect]
     Route: 042
  27. DACARBAZINE [Suspect]
     Indication: HODGKIN'S DISEASE
     Route: 042
  28. PREDNISONE TAB [Suspect]
     Route: 048
  29. PROCARBAZINE HYDROCHLORIDE [Suspect]
     Route: 065
  30. NEUPOGEN [Concomitant]
     Indication: PROPHYLAXIS
     Route: 058

REACTIONS (23)
  - NEUROPATHY PERIPHERAL [None]
  - EJECTION FRACTION DECREASED [None]
  - CAECITIS [None]
  - FEBRILE NEUTROPENIA [None]
  - HYPOXIA [None]
  - OESOPHAGITIS [None]
  - HODGKIN'S DISEASE RECURRENT [None]
  - NEOPLASM MALIGNANT [None]
  - DYSPHAGIA [None]
  - PHARYNGITIS [None]
  - CARBON MONOXIDE DIFFUSING CAPACITY DECREASED [None]
  - ODYNOPHAGIA [None]
  - TREATMENT FAILURE [None]
  - ANAEMIA [None]
  - THROMBOCYTOPENIA [None]
  - STOMATITIS [None]
  - NAUSEA [None]
  - VOMITING [None]
  - OVARIAN FAILURE [None]
  - NEUTROPENIA [None]
  - DYSPNOEA [None]
  - INFECTION [None]
  - HYPERSENSITIVITY [None]
